FAERS Safety Report 9150968 (Version 1)
Quarter: 2013Q1

REPORT INFORMATION
  Report Type: Spontaneous
  Country: US (occurrence: US)
  Receive Date: 20130308
  Receipt Date: 20130308
  Transmission Date: 20140127
  Serious: No
  Sender: FDA-Public Use
  Company Number: US-GLAXOSMITHKLINE-A0990075A

PATIENT
  Age: 65 Year
  Sex: Male

DRUGS (9)
  1. OLUX-E [Suspect]
     Indication: POLYMORPHIC LIGHT ERUPTION
     Dosage: 1APP TWICE PER DAY
     Route: 061
     Dates: start: 20120814
  2. LIPITOR [Concomitant]
  3. NIACIN [Concomitant]
  4. VITAMINS [Concomitant]
  5. PLAVIX [Concomitant]
  6. TOPROL XL [Concomitant]
  7. TRICOR [Concomitant]
  8. AVODART [Concomitant]
  9. LEVOTHYROXINE [Concomitant]

REACTIONS (2)
  - Headache [Not Recovered/Not Resolved]
  - Photopsia [Unknown]
